FAERS Safety Report 9345225 (Version 1)
Quarter: 2013Q2

REPORT INFORMATION
  Report Type: Spontaneous
  Country: US (occurrence: US)
  Receive Date: 20130612
  Receipt Date: 20130612
  Transmission Date: 20140414
  Serious: Yes (Death)
  Sender: FDA-Public Use
  Company Number: US-MYLANLABS-2013S1012258

PATIENT
  Age: 73 Year
  Sex: Female

DRUGS (1)
  1. IRBESARTAN [Suspect]
     Route: 065

REACTIONS (9)
  - Acute hepatic failure [Fatal]
  - Abdominal pain [Unknown]
  - Lip swelling [Unknown]
  - Urticaria [Unknown]
  - Renal failure acute [Unknown]
  - Cardiogenic shock [Unknown]
  - Acute myocardial infarction [Unknown]
  - Hypothermia [Unknown]
  - Hypoglycaemia [Unknown]
